FAERS Safety Report 8031707-5 (Version None)
Quarter: 2012Q1

REPORT INFORMATION
  Report Type: 
  Country: None (occurrence: None)
  Receive Date: 20120109
  Receipt Date: 20111229
  Transmission Date: 20120608
  Serious: Yes (Other)
  Sender: FDA-Public Use
  Company Number: DE-NOVOPROD-342216

PATIENT

DRUGS (2)
  1. NORDITROPIN [Suspect]
     Indication: SMALL FOR DATES BABY
     Dosage: UNK
     Dates: start: 20060623, end: 20110117
  2. NORDITROPIN FLEXPRO [Suspect]
     Indication: SMALL FOR DATES BABY
     Dosage: 1.2 MG, QD
     Route: 058
     Dates: start: 20110118, end: 20110722

REACTIONS (2)
  - VISUAL IMPAIRMENT [None]
  - PAPILLOEDEMA [None]
